FAERS Safety Report 5295644-1 (Version None)
Quarter: 2007Q2

REPORT INFORMATION
  Report Type: 
  Country: None (occurrence: None)
  Receive Date: 20070410
  Receipt Date: 20070410
  Transmission Date: 20071010
  Serious: Yes (Other)
  Sender: FDA-Public Use
  Company Number: None

PATIENT
  Sex: Female

DRUGS (1)
  1. GAMUNEX [Suspect]
     Dosage: 75OM DAILY X 2D IV DRIP
     Route: 042
     Dates: start: 20070315, end: 20070315

REACTIONS (11)
  - ARTHRALGIA [None]
  - ASTHENIA [None]
  - BACK PAIN [None]
  - FEELING ABNORMAL [None]
  - HEADACHE [None]
  - INJECTION SITE URTICARIA [None]
  - MUSCULOSKELETAL DISORDER [None]
  - NAUSEA [None]
  - OEDEMA PERIPHERAL [None]
  - TENDERNESS [None]
  - VISION BLURRED [None]
